FAERS Safety Report 25818667 (Version 1)
Quarter: 2025Q3

REPORT INFORMATION
  Report Type: Spontaneous
  Country: EU (occurrence: EU)
  Receive Date: 20250918
  Receipt Date: 20250918
  Transmission Date: 20251020
  Serious: Yes (Other)
  Sender: MYLAN
  Company Number: None

PATIENT
  Age: 80 Year
  Sex: Male

DRUGS (16)
  1. VALACYCLOVIR HYDROCHLORIDE [Suspect]
     Active Substance: VALACYCLOVIR HYDROCHLORIDE
     Indication: Antiviral prophylaxis
     Dosage: 2 DOSAGE FORM, QD (1 TABLET MORNING AND EVENING)
     Dates: start: 20250731
  2. VALACYCLOVIR HYDROCHLORIDE [Suspect]
     Active Substance: VALACYCLOVIR HYDROCHLORIDE
     Dosage: 2 DOSAGE FORM, QD (1 TABLET MORNING AND EVENING)
     Route: 048
     Dates: start: 20250731
  3. VALACYCLOVIR HYDROCHLORIDE [Suspect]
     Active Substance: VALACYCLOVIR HYDROCHLORIDE
     Dosage: 2 DOSAGE FORM, QD (1 TABLET MORNING AND EVENING)
     Route: 048
     Dates: start: 20250731
  4. VALACYCLOVIR HYDROCHLORIDE [Suspect]
     Active Substance: VALACYCLOVIR HYDROCHLORIDE
     Dosage: 2 DOSAGE FORM, QD (1 TABLET MORNING AND EVENING)
     Dates: start: 20250731
  5. MIRTAZAPINE [Suspect]
     Active Substance: MIRTAZAPINE
     Indication: Anxiety
     Dosage: 2 DOSAGE FORM, QD (2 TABLETS IN THE EVENING)
     Dates: start: 20250728
  6. MIRTAZAPINE [Suspect]
     Active Substance: MIRTAZAPINE
     Dosage: 2 DOSAGE FORM, QD (2 TABLETS IN THE EVENING)
     Route: 048
     Dates: start: 20250728
  7. MIRTAZAPINE [Suspect]
     Active Substance: MIRTAZAPINE
     Dosage: 2 DOSAGE FORM, QD (2 TABLETS IN THE EVENING)
     Route: 048
     Dates: start: 20250728
  8. MIRTAZAPINE [Suspect]
     Active Substance: MIRTAZAPINE
     Dosage: 2 DOSAGE FORM, QD (2 TABLETS IN THE EVENING)
     Dates: start: 20250728
  9. CASPOFUNGIN [Suspect]
     Active Substance: CASPOFUNGIN
     Indication: Antifungal prophylaxis
  10. CASPOFUNGIN [Suspect]
     Active Substance: CASPOFUNGIN
     Route: 042
  11. CASPOFUNGIN [Suspect]
     Active Substance: CASPOFUNGIN
     Route: 042
  12. CASPOFUNGIN [Suspect]
     Active Substance: CASPOFUNGIN
  13. PIPERACILLIN SODIUM\TAZOBACTAM SODIUM [Suspect]
     Active Substance: PIPERACILLIN SODIUM\TAZOBACTAM SODIUM
     Indication: Pneumonia aspiration
     Dates: start: 20250729, end: 20250812
  14. PIPERACILLIN SODIUM\TAZOBACTAM SODIUM [Suspect]
     Active Substance: PIPERACILLIN SODIUM\TAZOBACTAM SODIUM
     Route: 042
     Dates: start: 20250729, end: 20250812
  15. PIPERACILLIN SODIUM\TAZOBACTAM SODIUM [Suspect]
     Active Substance: PIPERACILLIN SODIUM\TAZOBACTAM SODIUM
     Route: 042
     Dates: start: 20250729, end: 20250812
  16. PIPERACILLIN SODIUM\TAZOBACTAM SODIUM [Suspect]
     Active Substance: PIPERACILLIN SODIUM\TAZOBACTAM SODIUM
     Dates: start: 20250729, end: 20250812

REACTIONS (1)
  - Acute generalised exanthematous pustulosis [Recovering/Resolving]

NARRATIVE: CASE EVENT DATE: 20250814
